FAERS Safety Report 17228829 (Version 1)
Quarter: 2020Q1

REPORT INFORMATION
  Report Type: Spontaneous
  Country: US (occurrence: US)
  Receive Date: 20200103
  Receipt Date: 20200103
  Transmission Date: 20200409
  Serious: Yes (Other)
  Sender: FDA-Public Use
  Company Number: US-BEH-2019111299

PATIENT
  Age: 3 Year
  Sex: Male

DRUGS (1)
  1. HIZENTRA [Suspect]
     Active Substance: HUMAN IMMUNOGLOBULIN G
     Indication: IMMUNODEFICIENCY
     Dosage: 3 GRAM, QOW
     Route: 058
     Dates: start: 20191020

REACTIONS (2)
  - Respiratory syncytial virus infection [Unknown]
  - Sinusitis [Unknown]
